FAERS Safety Report 20208556 (Version 1)
Quarter: 2021Q4

REPORT INFORMATION
  Report Type: Spontaneous
  Country: FR (occurrence: FR)
  Receive Date: 20211220
  Receipt Date: 20211220
  Transmission Date: 20220303
  Serious: Yes (Hospitalization)
  Sender: FDA-Public Use
  Company Number: None

PATIENT
  Age: 54 Year
  Sex: Male
  Weight: 61 kg

DRUGS (9)
  1. ROSUVASTATIN CALCIUM [Suspect]
     Active Substance: ROSUVASTATIN CALCIUM
     Indication: Dyslipidaemia
     Dosage: 5 MILLIGRAM DAILY; 1 / D,ROSUVASTATIN 5 MG FILM-COATED TABLETS
     Route: 048
     Dates: end: 20211029
  2. AMLODIPINE BESYLATE [Suspect]
     Active Substance: AMLODIPINE BESYLATE
     Indication: Hypertension
     Dosage: 5 MILLIGRAM DAILY; 1-0-0,AMLOR 5 MG HARD CAPSULE
     Route: 048
  3. INDAPAMIDE\PERINDOPRIL [Suspect]
     Active Substance: INDAPAMIDE\PERINDOPRIL
     Indication: Hypertension
     Dosage: PERINDOPRIL ARGININE / INDAPAMIDE BIOGARAN 5 MG / 1.25 MG FILM-COATED TABLETS,UNIT DOSE:1DOSAGEFORM
     Route: 048
     Dates: end: 20211031
  4. CITALOPRAM [Suspect]
     Active Substance: CITALOPRAM HYDROBROMIDE
     Indication: Mixed anxiety and depressive disorder
     Dosage: CITALOPRAM EVOLUGEN 20 MG FILM-COATED TABLETS,UNIT DOSE:20MILLIGRAM
     Route: 048
     Dates: start: 20211002, end: 20211029
  5. ALPRAZOLAM [Suspect]
     Active Substance: ALPRAZOLAM
     Indication: Anxiety
     Dosage: ALPRAZOLAM BIOGARAN 0.25 MG, SCORED TABLET
     Route: 048
     Dates: start: 20211002, end: 20211029
  6. PERINDOPRIL [Concomitant]
     Active Substance: PERINDOPRIL
     Indication: Hypertension
     Dosage: 4 MILLIGRAM DAILY; 1-0-0,PERINDOPRIL ARROW LAB 4 MG, SCORED TABLET
     Route: 048
     Dates: start: 20211101
  7. ACAMPROSATE [Concomitant]
     Active Substance: ACAMPROSATE
     Indication: Abstains from alcohol
     Dosage: 3-3-3,ACAMPROSATE BIOGARAN 333 MG, GASTRO-RESISTANT FILM-COATED TABLETS,UNIT DOSE:9DOSAGEFORM
     Route: 048
     Dates: start: 20210901, end: 20211029
  8. URAPIDIL [Concomitant]
     Active Substance: URAPIDIL
     Indication: Hypertension
     Dosage: 120 MILLIGRAM DAILY; 1-0-1,EUPRESSYL LP 30 MG PROLONGED-RELEASE HARD CAPSULES
     Route: 048
  9. KARDEGIC [Concomitant]
     Active Substance: ASPIRIN DL-LYSINE
     Indication: Antiplatelet therapy
     Dosage: 75 MILLIGRAM DAILY; 0-1-0,KARDEGIC 75 MG POWDER FOR ORAL SOLUTION IN SACHET-DOSE
     Route: 048

REACTIONS (3)
  - Myalgia [Recovered/Resolved]
  - Hypernatraemia [Recovered/Resolved]
  - Hypokalaemia [Recovered/Resolved]

NARRATIVE: CASE EVENT DATE: 20211029
